FAERS Safety Report 4915003-8 (Version None)
Quarter: 2006Q1

REPORT INFORMATION
  Report Type: 
  Country: None (occurrence: None)
  Receive Date: 20060215
  Receipt Date: 20060215
  Transmission Date: 20060701
  Serious: Yes (Other)
  Sender: FDA-Public Use
  Company Number: None

PATIENT
  Age: 62 Year
  Sex: Male

DRUGS (1)
  1. ZOMETA [Suspect]
     Indication: PROSTATE CANCER METASTATIC
     Dosage: Q MOS PO    1 X PER MONTH FOR APPROXIMATELY 3 YRS
     Route: 048

REACTIONS (4)
  - IMPAIRED HEALING [None]
  - OSTEONECROSIS [None]
  - POSTOPERATIVE WOUND COMPLICATION [None]
  - TOOTH EXTRACTION [None]
